FAERS Safety Report 5936600-7 (Version None)
Quarter: 2008Q4

REPORT INFORMATION
  Report Type: 
  Country: None (occurrence: None)
  Receive Date: 20081030
  Receipt Date: 20081020
  Transmission Date: 20090506
  Serious: Yes (Other)
  Sender: FDA-Public Use
  Company Number: AR-ABBOTT-08P-007-0483349-00

PATIENT
  Age: 25 Year
  Sex: Female

DRUGS (6)
  1. RITONAVIR SOFT GELATIN CAPSULES [Suspect]
     Indication: HIV INFECTION
     Route: 048
     Dates: start: 20060519, end: 20071218
  2. RITONAVIR SOFT GELATIN CAPSULES [Suspect]
     Dates: start: 20080104
  3. ATAZANAVIR SULFATE [Concomitant]
     Indication: HIV INFECTION
     Route: 048
     Dates: start: 20060519, end: 20071218
  4. ATAZANAVIR SULFATE [Concomitant]
     Dates: start: 20080104
  5. EMTRICITABINE [Concomitant]
     Indication: HIV INFECTION
     Dates: start: 20060519, end: 20071218
  6. EMTRICITABINE [Concomitant]
     Dates: start: 20080104

REACTIONS (1)
  - ABORTION SPONTANEOUS [None]
